FAERS Safety Report 7081990-8 (Version None)
Quarter: 2010Q4

REPORT INFORMATION
  Report Type: 
  Country: None (occurrence: None)
  Receive Date: 20101103
  Receipt Date: 20101025
  Transmission Date: 20110411
  Serious: Yes (Hospitalization, Other)
  Sender: FDA-Public Use
  Company Number: JP-PFIZER INC-2010135523

PATIENT
  Age: 85 Year

DRUGS (1)
  1. GABAPEN [Suspect]
     Dosage: 600MG/DAY
     Route: 048

REACTIONS (1)
  - RENAL IMPAIRMENT [None]
